FAERS Safety Report 11381319 (Version 2)
Quarter: 2015Q3

REPORT INFORMATION
  Report Type: Spontaneous
  Country: US (occurrence: US)
  Receive Date: 20150814
  Receipt Date: 20150930
  Transmission Date: 20151125
  Serious: No
  Sender: FDA-Public Use
  Company Number: ALCN2015US005067

PATIENT
  Age: 60 Year
  Sex: Female

DRUGS (1)
  1. NEOMYCIN AND POLYMYXIN B SULFATES AND DEXAMETHASONE [Suspect]
     Active Substance: DEXAMETHASONE\NEOMYCIN SULFATE\POLYMYXIN B SULFATE
     Indication: PRODUCT USED FOR UNKNOWN INDICATION
     Dosage: 1 GTT, TID
     Route: 047
     Dates: start: 20150804

REACTIONS (3)
  - No therapeutic response [Unknown]
  - Condition aggravated [Unknown]
  - Eye swelling [Unknown]
